FAERS Safety Report 19418079 (Version 2)
Quarter: 2021Q4

REPORT INFORMATION
  Report Type: Spontaneous
  Country: US (occurrence: US)
  Receive Date: 20210615
  Receipt Date: 20211214
  Transmission Date: 20220303
  Serious: No
  Sender: FDA-Public Use
  Company Number: US-GLOBAL BLOOD THERAPEUTICS INC-US-GBT-21-00812

PATIENT
  Age: 64 Year
  Sex: Female

DRUGS (7)
  1. OXBRYTA [Suspect]
     Active Substance: VOXELOTOR
     Indication: Product used for unknown indication
     Route: 048
  2. OXBRYTA [Suspect]
     Active Substance: VOXELOTOR
     Route: 048
  3. OXBRYTA [Suspect]
     Active Substance: VOXELOTOR
     Dosage: TAKES MAYBE 2 PILLS
     Route: 048
  4. OXBRYTA [Suspect]
     Active Substance: VOXELOTOR
     Dosage: TAKES 3 PILLS SOMETIMES
     Route: 048
  5. OXBRYTA [Suspect]
     Active Substance: VOXELOTOR
     Route: 048
  6. OXBRYTA [Suspect]
     Active Substance: VOXELOTOR
     Route: 048
  7. HUMAN RED BLOOD CELL [Concomitant]
     Active Substance: HUMAN RED BLOOD CELL
     Indication: Full blood count abnormal
     Dosage: NOT PROVIDED
     Dates: start: 202107

REACTIONS (3)
  - Full blood count abnormal [Not Recovered/Not Resolved]
  - Diarrhoea [Unknown]
  - Intentional product misuse [Unknown]

NARRATIVE: CASE EVENT DATE: 20210308
